FAERS Safety Report 20013609 (Version 1)
Quarter: 2021Q4

REPORT INFORMATION
  Report Type: Spontaneous
  Country: ES (occurrence: ES)
  Receive Date: 20211029
  Receipt Date: 20211029
  Transmission Date: 20220304
  Serious: Yes (Hospitalization)
  Sender: FDA-Public Use
  Company Number: None

PATIENT
  Age: 55 Year
  Sex: Male
  Weight: 78 kg

DRUGS (2)
  1. FUROSEMIDE [Interacting]
     Active Substance: FUROSEMIDE
     Indication: Hepatic hydrothorax
     Dosage: FUROSEMIDA 40 MG: 1 CP AL DIA LUNES, MIERCOLES Y VIERNES. MEDIO COMPRIMIDO MARTES, JUEVES, SABADO Y
     Route: 048
     Dates: start: 20200212
  2. SPIRONOLACTONE [Interacting]
     Active Substance: SPIRONOLACTONE
     Indication: Hepatic hydrothorax
     Dosage: UNK, QD
     Route: 048
     Dates: start: 20200219

REACTIONS (1)
  - Acute kidney injury [Recovered/Resolved]

NARRATIVE: CASE EVENT DATE: 20210511
